FAERS Safety Report 19792960 (Version 1)
Quarter: 2021Q3

REPORT INFORMATION
  Report Type: Report from Study
  Country: US (occurrence: US)
  Receive Date: 20210906
  Receipt Date: 20210906
  Transmission Date: 20211014
  Serious: Yes (Hospitalization)
  Sender: FDA-Public Use
  Company Number: US-EMD SERONO-9262510

PATIENT
  Age: 80 Year
  Sex: Male

DRUGS (1)
  1. REBIF [Suspect]
     Active Substance: INTERFERON BETA-1A
     Indication: MULTIPLE SCLEROSIS
     Route: 058
     Dates: start: 2000

REACTIONS (3)
  - Cerebrovascular accident [Unknown]
  - Multiple sclerosis [Unknown]
  - Spondylitis [Unknown]

NARRATIVE: CASE EVENT DATE: 202107
